FAERS Safety Report 7829481-8 (Version None)
Quarter: 2011Q4

REPORT INFORMATION
  Report Type: 
  Country: None (occurrence: None)
  Receive Date: 20111020
  Receipt Date: 20111014
  Transmission Date: 20120403
  Serious: Yes (Other)
  Sender: FDA-Public Use
  Company Number: US-ROCHE-727261

PATIENT
  Sex: Male
  Weight: 86.2 kg

DRUGS (3)
  1. ACCUTANE [Suspect]
     Route: 065
     Dates: start: 20070601, end: 20070901
  2. ACCUTANE [Suspect]
     Route: 065
     Dates: start: 20070901, end: 20071101
  3. ACCUTANE [Suspect]
     Indication: ACNE
     Route: 065

REACTIONS (3)
  - GASTROINTESTINAL INJURY [None]
  - COLITIS ULCERATIVE [None]
  - SACROILIITIS [None]
